FAERS Safety Report 19201799 (Version 4)
Quarter: 2022Q1

REPORT INFORMATION
  Report Type: Spontaneous
  Country: CA (occurrence: CA)
  Receive Date: 20210430
  Receipt Date: 20220307
  Transmission Date: 20220423
  Serious: Yes (Hospitalization, Other)
  Sender: FDA-Public Use
  Company Number: CA-SAMSUNG BIOEPIS-SB-2021-10379

PATIENT
  Age: 32 Year
  Sex: Female
  Weight: 88 kg

DRUGS (2)
  1. INFLIXIMAB [Suspect]
     Active Substance: INFLIXIMAB
     Indication: Colitis ulcerative
     Route: 042
  2. BETNESOL [Concomitant]
     Indication: Product used for unknown indication
     Dosage: UNKNOWN
     Route: 065

REACTIONS (8)
  - Blood pressure increased [Unknown]
  - Clostridium difficile infection [Unknown]
  - Heart rate abnormal [Unknown]
  - Weight fluctuation [Unknown]
  - Incorrect dose administered [Unknown]
  - Off label use [Unknown]
  - Intentional product use issue [Unknown]
  - Product use issue [Unknown]
